FAERS Safety Report 18474190 (Version 1)
Quarter: 2020Q4

REPORT INFORMATION
  Report Type: Spontaneous
  Country: US (occurrence: US)
  Receive Date: 20201106
  Receipt Date: 20201106
  Transmission Date: 20210114
  Serious: No
  Sender: FDA-Public Use
  Company Number: US-BAYER-2020-240970

PATIENT

DRUGS (1)
  1. CLARITIN [Suspect]
     Active Substance: LORATADINE
     Indication: ARTHROPOD BITE
     Dosage: 4 DF
     Route: 048

REACTIONS (4)
  - Somnolence [Unknown]
  - Palpitations [Unknown]
  - Headache [Unknown]
  - Product use in unapproved indication [None]

NARRATIVE: CASE EVENT DATE: 20201105
